FAERS Safety Report 5332382-0 (Version None)
Quarter: 2007Q2

REPORT INFORMATION
  Report Type: 
  Country: None (occurrence: None)
  Receive Date: 20070523
  Receipt Date: 20070518
  Transmission Date: 20071010
  Serious: Yes (Hospitalization)
  Sender: FDA-Public Use
  Company Number: B0471776A

PATIENT
  Age: 56 Year
  Sex: Female

DRUGS (8)
  1. AUGMENTIN '125' [Suspect]
     Indication: PYODERMA
     Dosage: 2G PER DAY
     Route: 048
     Dates: start: 20070423, end: 20070426
  2. AZITHROMYCIN [Suspect]
     Indication: PYODERMA
     Dosage: 500MG PER DAY
     Route: 048
     Dates: start: 20070427, end: 20070429
  3. TETANUS VACCINE [Suspect]
     Indication: PROPHYLAXIS
     Route: 030
     Dates: start: 20070426, end: 20070426
  4. ALPRAZOLAM [Concomitant]
     Route: 048
  5. ASPIRIN [Concomitant]
     Route: 048
  6. HYDROXYCHLOROQUINE SULPHATE [Concomitant]
     Route: 048
  7. MISOPROSTOL [Concomitant]
     Route: 048
  8. PREDNISOLONE [Concomitant]
     Route: 048

REACTIONS (3)
  - FACE OEDEMA [None]
  - OEDEMA PERIPHERAL [None]
  - RASH MACULAR [None]
